FAERS Safety Report 6258869-4 (Version None)
Quarter: 2009Q3

REPORT INFORMATION
  Report Type: 
  Country: None (occurrence: None)
  Receive Date: 20090707
  Receipt Date: 20090702
  Transmission Date: 20100115
  Serious: Yes (Life-Threatening, Hospitalization)
  Sender: FDA-Public Use
  Company Number: JP-BRISTOL-MYERS SQUIBB COMPANY-14620686

PATIENT
  Age: 66 Year
  Sex: Male
  Weight: 58 kg

DRUGS (6)
  1. ERBITUX [Suspect]
     Indication: COLON CANCER
     Dosage: SUBSEQUENT INF ON 28APR09(250MG/M2)
     Route: 042
     Dates: start: 20090421, end: 20090421
  2. IRINOTECAN HCL [Suspect]
     Indication: COLON CANCER
     Dosage: 1ST INF 21APR09
     Route: 042
     Dates: start: 20090421
  3. DIPHENHYDRAMINE HCL [Concomitant]
     Indication: PREMEDICATION
     Dosage: FORM= TABS
     Route: 048
     Dates: start: 20090421
  4. DEXART [Concomitant]
     Indication: PREMEDICATION
     Route: 042
     Dates: start: 20090421
  5. KYTRIL [Concomitant]
     Indication: ANTIEMETIC SUPPORTIVE CARE
     Route: 042
     Dates: start: 20090421, end: 20090421
  6. CALONAL [Concomitant]
     Indication: PREMEDICATION
     Route: 048

REACTIONS (2)
  - DECREASED APPETITE [None]
  - FEBRILE NEUTROPENIA [None]
